FAERS Safety Report 4511082-0 (Version None)
Quarter: 2004Q4

REPORT INFORMATION
  Report Type: 
  Country: None (occurrence: None)
  Receive Date: 20041015
  Receipt Date: 20040505
  Transmission Date: 20050328
  Serious: Yes (Hospitalization, Other)
  Sender: FDA-Public Use
  Company Number: 2004012512

PATIENT
  Age: 57 Year
  Sex: Female

DRUGS (7)
  1. NEURONTIN [Suspect]
     Indication: ANXIETY
     Dosage: 900 MG (300 MG, TID), ORAL
     Route: 048
  2. PHENOBARBITAL TAB [Suspect]
     Indication: ILL-DEFINED DISORDER
     Dosage: 60 MG (60 MG, DAILY), ORAL
     Route: 048
     Dates: start: 19730101
  3. QUETIAPINE FUMARATE (QUETIAPINE FUMARATE) [Suspect]
     Indication: ILL-DEFINED DISORDER
  4. OXCARBAZEPINE (OXCARBAZEPINE) [Suspect]
     Indication: ILL-DEFINED DISORDER
  5. ESCITALOPRAM (ESCITALOPRAM) [Concomitant]
  6. ALPRAZOLAM [Concomitant]
  7. CLONAZEPAM [Concomitant]

REACTIONS (4)
  - ASTHENIA [None]
  - CONVULSION [None]
  - HOT FLUSH [None]
  - PANIC DISORDER [None]
